FAERS Safety Report 5391420-X (Version None)
Quarter: 2007Q3

REPORT INFORMATION
  Report Type: 
  Country: None (occurrence: None)
  Receive Date: 20070719
  Receipt Date: 20070711
  Transmission Date: 20080115
  Serious: Yes (Life-Threatening)
  Sender: FDA-Public Use
  Company Number: JP-ROCHE-504091

PATIENT
  Age: 74 Year
  Sex: Female
  Weight: 54 kg

DRUGS (5)
  1. ROCALTROL [Suspect]
     Indication: OSTEOPOROSIS
     Route: 048
     Dates: start: 20041102
  2. EVISTA [Suspect]
     Indication: OSTEOPOROSIS
     Route: 048
     Dates: start: 20050127, end: 20070614
  3. FAMOTIDINE [Concomitant]
     Route: 048
     Dates: start: 20011219
  4. MYSLEE [Concomitant]
     Route: 048
     Dates: start: 20011219
  5. AMLODIPINE [Concomitant]
     Route: 048
     Dates: start: 20011219

REACTIONS (1)
  - VENOUS THROMBOSIS [None]
